FAERS Safety Report 10464049 (Version 1)
Quarter: 2014Q3

REPORT INFORMATION
  Report Type: Spontaneous
  Country: FR (occurrence: None)
  Receive Date: 20140917
  Receipt Date: 20140917
  Transmission Date: 20150326
  Serious: Yes (Other)
  Sender: FDA-Public Use
  Company Number: IPC201409-000465

PATIENT
  Age: 67 Year
  Sex: Male

DRUGS (7)
  1. HYDROCHLOROTHIAZIDE (HYDROCHLOROTHIAZIDE) (HYDROCHLOROTHIAZIDE) [Suspect]
     Active Substance: HYDROCHLOROTHIAZIDE
  2. TELMISARTAN (TELMISARTAN) (TELMISARTAN) [Suspect]
     Active Substance: TELMISARTAN
  3. ROSUVASTATIN [Concomitant]
     Active Substance: ROSUVASTATIN
  4. RIVAROXABAN [Suspect]
     Active Substance: RIVAROXABAN
     Indication: ATRIAL FIBRILLATION
  5. AMLODIPINE BESILATE (AMLODIPINE BESILATE) (AMLODIPINE BESILATE) [Suspect]
     Active Substance: AMLODIPINE BESYLATE
  6. BETAXOLOL [Concomitant]
     Active Substance: BETAXOLOL
  7. FLECAINIDE [Concomitant]
     Active Substance: FLECAINIDE

REACTIONS (4)
  - Intestinal ischaemia [None]
  - Splenic rupture [None]
  - Multi-organ disorder [None]
  - Shock haemorrhagic [None]
